FAERS Safety Report 9611090 (Version 1)
Quarter: 2013Q4

REPORT INFORMATION
  Report Type: Spontaneous
  Country: US (occurrence: US)
  Receive Date: 20131009
  Receipt Date: 20131009
  Transmission Date: 20140711
  Serious: No
  Sender: FDA-Public Use
  Company Number: US-SAVIENT-2013S1000087

PATIENT
  Age: 44 Year
  Sex: Male
  Weight: 106.69 kg

DRUGS (11)
  1. KRYSTEXXA [Suspect]
     Indication: GOUT
     Route: 042
     Dates: start: 20130728, end: 20130728
  2. KRYSTEXXA [Suspect]
     Dates: end: 201305
  3. PROMETHAZINE [Concomitant]
     Indication: ALLERGY PROPHYLAXIS
  4. REGLAN [Concomitant]
     Indication: ALLERGY PROPHYLAXIS
  5. ZOFRAN [Concomitant]
     Indication: NAUSEA
     Route: 048
  6. VICODIN [Concomitant]
     Indication: PAIN
     Dosage: 5/500 MG
     Route: 048
  7. SOLU-CORTEF [Concomitant]
     Indication: ALLERGY PROPHYLAXIS
  8. FLUTICASONE NASAL SPRAY [Concomitant]
     Indication: PRODUCT USED FOR UNKNOWN INDICATION
  9. IBUPROFEN [Concomitant]
     Indication: ARTHRALGIA
     Route: 048
  10. NAPROSYN [Concomitant]
     Indication: ARTHRALGIA
     Route: 048
  11. ALLOPURINOL [Concomitant]
     Indication: GOUT
     Route: 048

REACTIONS (2)
  - Headache [Recovered/Resolved]
  - Therapeutic response decreased [Unknown]
